FAERS Safety Report 21936257 (Version 1)
Quarter: 2023Q1

REPORT INFORMATION
  Report Type: Spontaneous
  Country: DE (occurrence: DE)
  Receive Date: 20230201
  Receipt Date: 20230201
  Transmission Date: 20230418
  Serious: Yes (Death, Hospitalization)
  Sender: FDA-Public Use
  Company Number: DE-009507513-2112DEU002441

PATIENT
  Sex: Female
  Weight: 70 kg

DRUGS (30)
  1. PEMETREXED [Suspect]
     Active Substance: PEMETREXED
     Indication: Non-small cell lung cancer
     Dosage: 600 MG
     Route: 065
     Dates: start: 20210902, end: 20210923
  2. PEMBROLIZUMAB [Suspect]
     Active Substance: PEMBROLIZUMAB
     Indication: Non-small cell lung cancer
     Dosage: 200 MG (POWDER FOR INJECTION)
     Route: 065
     Dates: start: 20210902
  3. CARBOPLATIN [Suspect]
     Active Substance: CARBOPLATIN
     Indication: Non-small cell lung cancer
     Dosage: 428 MG
     Route: 065
     Dates: start: 20210902, end: 20210923
  4. ZOLPIDEM-RATIOPHARM [Concomitant]
     Indication: Product used for unknown indication
     Dosage: 5 MG, QD
     Route: 048
     Dates: start: 20210819, end: 20210828
  5. ONDANSETRON BETA [Concomitant]
     Indication: Product used for unknown indication
     Dosage: 12 MG, QD (6 MG, BID (CONCENTRATION REPORTED AS:2 MG/-4 MG/-8 MG/-16 MG/-24 MG)CAPSULE, DELAYED RELE
     Route: 048
     Dates: start: 20210820, end: 20210826
  6. ONDANSETRON BETA [Concomitant]
     Dosage: 16 MG, QD (8 MG, BID)
     Route: 048
     Dates: start: 20210820, end: 20210828
  7. ONDANSETRON BETA [Concomitant]
     Dosage: 24 MG, QD (8 MG TID (FORMULATION REPORTED AS 2 MG/-4 MG/-8 MG/-16 MG EXTENDED RELEASE CAPSULES)
     Route: 042
     Dates: start: 20210913, end: 20210922
  8. ONDANSETRON BETA [Concomitant]
     Dosage: 24 MG, QD (8 MILLIGRAM, TID (FORMULATION REPORTED AS 4 MG/-8 MG ORALLY DISINTEGRATING TABLETS)
     Route: 065
     Dates: start: 20210916, end: 20210921
  9. ONDANSETRON BETA [Concomitant]
     Dosage: 24 MG, QD (8 MILLIGRAM, TID
     Route: 042
     Dates: start: 20210921, end: 20210922
  10. PANTOPRAZOL BETA [Concomitant]
     Indication: Product used for unknown indication
     Dosage: 40 MG, QD (FORMULATION REPORTED AS20 MG/-40 MG ENTERIC-COATED TABLETS)
     Route: 048
     Dates: start: 20210819, end: 20210827
  11. POLYETHYLENE GLYCOL 3350\POTASSIUM CHLORIDE\SODIUM BICARBONATE\SODIUM [Concomitant]
     Active Substance: POLYETHYLENE GLYCOL 3350\POTASSIUM CHLORIDE\SODIUM BICARBONATE\SODIUM CHLORIDE
     Indication: Product used for unknown indication
     Dosage: 1 DOSAGE FORM (SACHET), QD
     Route: 048
     Dates: start: 20210822, end: 20210828
  12. HYDROMORPHONHYDROCHLORID BETA [Concomitant]
     Indication: Product used for unknown indication
     Dosage: 16 MG, QD (8 MG, TWICE DAILY (FORMULATION REPORTED AS 2 MG/-4 MG/-8 MG/-16 MG EXTENDED RELEASE CAPSU
     Route: 065
     Dates: start: 20210816, end: 20210819
  13. HYDROMORPHONHYDROCHLORID BETA [Concomitant]
     Dosage: 8 MG, QD (8 MG, BID (FORMULATION REPORTED AS:2 MG/-4 MG/-8 MG/-16 MG/-24 MG RETARD CAPSULES/CAPSULE,
     Route: 048
     Dates: start: 20210817, end: 20210826
  14. HYDROMORPHONHYDROCHLORID BETA [Concomitant]
     Dosage: 12 MG, QD (6 MG TWICE DAILY (FORMULATION REPORTED AS 2 MG/-4 MG/-8 MG/-16 MG EXTENDED RELEASE CAPSUL
     Route: 048
     Dates: start: 20210820, end: 20210826
  15. HYDROMORPHONHYDROCHLORID BETA [Concomitant]
     Dosage: 12 MG, QD (4 MG, TID(FORMULATION REPORTED AS:2 MG/-4 MG/-8 MG/-16 MG/-24 MG RETARD CAPSULES/CAPSULE,
     Route: 048
     Dates: start: 20210827
  16. TINZAPARIN SODIUM [Concomitant]
     Active Substance: TINZAPARIN SODIUM
     Indication: Product used for unknown indication
     Dosage: 3500 IU, QD
     Route: 058
     Dates: start: 20210816, end: 20210827
  17. SODIUM PICOSULFATE [Concomitant]
     Active Substance: SODIUM PICOSULFATE
     Indication: Product used for unknown indication
     Dosage: 10 DOSAGE FORM (GTT), QD
     Route: 048
     Dates: start: 20210821, end: 20210828
  18. SODIUM PICOSULFATE [Concomitant]
     Active Substance: SODIUM PICOSULFATE
     Dosage: 12 DOSAGE FORM (GTT), QD
     Route: 048
     Dates: start: 20210913, end: 20210923
  19. CODEINE [Concomitant]
     Active Substance: CODEINE
     Indication: Product used for unknown indication
     Dosage: 20 DOSAGE FORM ( GTT), QD
     Route: 048
     Dates: start: 20210819, end: 20210828
  20. FILGRASTIM [Concomitant]
     Active Substance: FILGRASTIM
     Indication: Product used for unknown indication
     Dosage: 30 DOSAGE FORM ( MIO), QD
     Route: 058
     Dates: start: 20210826, end: 20210826
  21. FILGRASTIM [Concomitant]
     Active Substance: FILGRASTIM
     Dosage: 30 DOSAGE FORM ( MIO ), QD
     Route: 058
     Dates: start: 20210817, end: 20210818
  22. LEVOFLOXACIN [Concomitant]
     Active Substance: LEVOFLOXACIN
     Indication: Product used for unknown indication
     Dosage: 1000 MG, QD (500 MG BID (REPORTED AS 250 MG/-500 MG FILM-COATED TABLETS))
     Route: 048
     Dates: start: 20210823, end: 20210824
  23. LEVOFLOXACIN [Concomitant]
     Active Substance: LEVOFLOXACIN
     Dosage: 500 MG, QD (REPORTED AS 250 MG/-500 MG FILM COATED TABLETS)
     Route: 065
     Dates: start: 20210917, end: 20210923
  24. SULTAMICILLIN TOSYLATE [Concomitant]
     Active Substance: SULTAMICILLIN TOSYLATE
     Indication: Product used for unknown indication
     Dosage: 9 MG, QD (3 MG, TID)
     Route: 065
     Dates: start: 20210816, end: 20210819
  25. SULTAMICILLIN TOSYLATE [Concomitant]
     Active Substance: SULTAMICILLIN TOSYLATE
     Dosage: 1500 MG, QD (750 MG, BID)
     Route: 048
     Dates: start: 20210819, end: 20210825
  26. MCP-RATIOPHARM [Concomitant]
     Active Substance: METOCLOPRAMIDE HYDROCHLORIDE
     Indication: Product used for unknown indication
     Dosage: 30 MG, QD (10 MILLIGRAM, TID)
     Route: 042
     Dates: start: 20210817, end: 20210819
  27. MCP-RATIOPHARM [Concomitant]
     Active Substance: METOCLOPRAMIDE HYDROCHLORIDE
     Dosage: 30 MG, QD (10 MG (REPORTED AS 10 MG/2 ML SOLUTION FOR INJECTION))
     Route: 042
     Dates: start: 20210921, end: 20210923
  28. MCP BETA [Concomitant]
     Indication: Product used for unknown indication
     Dosage: 20 MG, QD (10 MG, BID)
     Route: 048
     Dates: start: 20210916, end: 20210921
  29. CITRIC ACID\POTASSIUM BICARBONATE\POTASSIUM CITRATE [Concomitant]
     Active Substance: CITRIC ACID MONOHYDRATE\POTASSIUM BICARBONATE\POTASSIUM CITRATE
     Indication: Product used for unknown indication
     Dosage: 15 MG, QD (5 MILLIGRAM, TID
     Route: 048
     Dates: start: 20210820, end: 20210823
  30. RINGERS SOLUTION [Concomitant]
     Active Substance: CALCIUM CHLORIDE\POTASSIUM CHLORIDE\SODIUM CHLORIDE
     Indication: Product used for unknown indication
     Dosage: 1000 ML, QD
     Route: 042
     Dates: start: 20210913, end: 20210914

REACTIONS (3)
  - Death [Fatal]
  - Nausea [Recovered/Resolved]
  - Vomiting [Recovered/Resolved]

NARRATIVE: CASE EVENT DATE: 20210909
